FAERS Safety Report 9381918 (Version 5)
Quarter: 2015Q2

REPORT INFORMATION
  Report Type: Spontaneous
  Country: US (occurrence: US)
  Receive Date: 20130703
  Receipt Date: 20150524
  Transmission Date: 20150821
  Serious: Yes (Death, Other)
  Sender: FDA-Public Use
  Company Number: US-JNJFOC-20130618676

PATIENT

DRUGS (9)
  1. DIPHENHYDRAMINE [Concomitant]
     Active Substance: DIPHENHYDRAMINE
     Indication: PREMEDICATION
     Route: 042
  2. GRANULOCYTE COLONY-STIMULATING FACTOR [Concomitant]
     Active Substance: GRANULOCYTE COLONY-STIMULATING FACTOR NOS
     Indication: PROPHYLAXIS
     Route: 065
  3. DENILEUKIN DIFTITOX [Suspect]
     Active Substance: DENILEUKIN DIFTITOX
     Indication: PERIPHERAL T-CELL LYMPHOMA UNSPECIFIED
     Dosage: DAYS 1, 2, EVERY 21 DAYS, LESS THAN OR EQUAL TO 6-8 CYCLES
     Route: 042
  4. PREDNISONE. [Suspect]
     Active Substance: PREDNISONE
     Indication: PERIPHERAL T-CELL LYMPHOMA UNSPECIFIED
     Dosage: LESS THAN OR EQUAL TO 6-8 CYCLES, ON DAY 3-7
     Route: 065
  5. VINCRISTINE [Suspect]
     Active Substance: VINCRISTINE
     Indication: PERIPHERAL T-CELL LYMPHOMA UNSPECIFIED
     Dosage: LESS THAN OR EQUAL TO 6-8 CYCLES, ON DAY 3
     Route: 042
  6. DEXAMETHASONE. [Concomitant]
     Active Substance: DEXAMETHASONE
     Indication: PREMEDICATION
     Dosage: 4-8 MG
     Route: 042
  7. ACETAMINOPHEN. [Concomitant]
     Active Substance: ACETAMINOPHEN
     Indication: PREMEDICATION
     Route: 048
  8. DOXORUBICIN [Suspect]
     Active Substance: DOXORUBICIN
     Indication: PERIPHERAL T-CELL LYMPHOMA UNSPECIFIED
     Dosage: LESS THAN OR EQUAL TO 6-8 CYCLES, ON DAY 3
     Route: 042
  9. CYCLOPHOSPHAMIDE. [Suspect]
     Active Substance: CYCLOPHOSPHAMIDE
     Indication: PERIPHERAL T-CELL LYMPHOMA UNSPECIFIED
     Dosage: LESS THAN OR EQUAL TO 6-8 CYCLES, ON DAY 3
     Route: 042

REACTIONS (29)
  - Nausea [Unknown]
  - Death [Fatal]
  - Toxicity to various agents [Unknown]
  - Hypocalcaemia [Unknown]
  - Oedema peripheral [Unknown]
  - Lymphopenia [Unknown]
  - Neutropenia [Unknown]
  - Leukopenia [Unknown]
  - Hyperglycaemia [Unknown]
  - Aspartate aminotransferase increased [Unknown]
  - Dyspnoea [Unknown]
  - Peripheral T-cell lymphoma unspecified [Unknown]
  - Hypoalbuminaemia [Unknown]
  - Alopecia [Unknown]
  - Hyponatraemia [Unknown]
  - Fatigue [Unknown]
  - Anaemia [Unknown]
  - Drug effect incomplete [Unknown]
  - Alanine aminotransferase increased [Unknown]
  - Peripheral sensory neuropathy [Unknown]
  - Febrile neutropenia [Unknown]
  - Constipation [Unknown]
  - Bone pain [Unknown]
  - Vomiting [Unknown]
  - Pyrexia [Unknown]
  - Dysgeusia [Unknown]
  - Dyspepsia [Unknown]
  - Thrombocytopenia [Unknown]
  - Cough [Unknown]
